FAERS Safety Report 6215780 (Version 2)
Quarter: 2013Q3

REPORT INFORMATION
  Report Type: Report from Study
  Country: AU (occurrence: AU)
  Receive Date: 20070116
  Receipt Date: 20130716
  Transmission Date: 20140515
  Serious: Yes (Hospitalization)
  Sender: FDA-Public Use
  Company Number: AU-ELI_LILLY_AND_COMPANY-AU200701002567

PATIENT
  Age: 9 Month
  Sex: Female
  Weight: 7.2 kg

DRUGS (3)
  1. SOMATROPIN [Suspect]
     Indication: HYPOPITUITARISM
     Dosage: 0.15 MG, OTHER
     Route: 058
     Dates: start: 20050420
  2. HYDROCORTISONE [Concomitant]
     Indication: HYPOPITUITARISM
     Dosage: 2 MG, 3/D
     Route: 048
     Dates: start: 20050419
  3. THYROXINE [Concomitant]
     Indication: HYPOPITUITARISM
     Dosage: 25 UG, DAILY (1/D)
     Route: 048
     Dates: start: 20050420

REACTIONS (1)
  - Viral upper respiratory tract infection [Recovered/Resolved]
